FAERS Safety Report 7332457-0 (Version None)
Quarter: 2011Q1

REPORT INFORMATION
  Report Type: 
  Country: None (occurrence: None)
  Receive Date: 20110304
  Receipt Date: 20110301
  Transmission Date: 20110831
  Serious: Yes (Death)
  Sender: FDA-Public Use
  Company Number: CN-ROCHE-762590

PATIENT
  Sex: Female

DRUGS (3)
  1. CORTICOSTEROIDS [Concomitant]
     Indication: RENAL TRANSPLANT
     Route: 048
  2. MYCOPHENOLATE MOFETIL [Suspect]
     Indication: RENAL TRANSPLANT
     Route: 048
     Dates: start: 20090904
  3. SANDIMMUNE [Concomitant]
     Indication: RENAL TRANSPLANT
     Route: 048

REACTIONS (1)
  - CARDIAC FAILURE [None]
